FAERS Safety Report 4760353-1 (Version None)
Quarter: 2005Q3

REPORT INFORMATION
  Report Type: 
  Country: None (occurrence: None)
  Receive Date: 20050902
  Receipt Date: 20050817
  Transmission Date: 20060218
  Serious: Yes (Disabling, Other)
  Sender: FDA-Public Use
  Company Number: 2005UW12411

PATIENT
  Sex: Male

DRUGS (2)
  1. NEXIUM [Suspect]
     Indication: GASTROOESOPHAGEAL REFLUX DISEASE
     Route: 048
     Dates: start: 20050101, end: 20050801
  2. NEXIUM [Suspect]
     Route: 048
     Dates: start: 20050801, end: 20050801

REACTIONS (3)
  - PHARYNGOLARYNGEAL PAIN [None]
  - REGURGITATION OF FOOD [None]
  - THROAT IRRITATION [None]
